FAERS Safety Report 6590424-9 (Version None)
Quarter: 2010Q1

REPORT INFORMATION
  Report Type: 
  Country: None (occurrence: None)
  Receive Date: 20100219
  Receipt Date: 20100206
  Transmission Date: 20100710
  Serious: Yes (Death, Life-Threatening)
  Sender: FDA-Public Use
  Company Number: US-ROCHE-683716

PATIENT
  Sex: Female
  Weight: 47.6 kg

DRUGS (9)
  1. BEVACIZUMAB [Suspect]
     Dosage: DOSE: 10MG/KG (510MG)
     Route: 042
     Dates: start: 20081130
  2. MAGIC MOUTHWASH NOS [Concomitant]
     Dosage: DOSE: 500, ROUTE: S/S, FEQUENCY: QD PRN
     Dates: start: 20081208, end: 20081210
  3. DIFLUCAN [Concomitant]
     Route: 048
     Dates: start: 20081208, end: 20081210
  4. EMEND [Concomitant]
     Route: 048
     Dates: start: 20081204, end: 20081205
  5. OXYCODONE HCL [Concomitant]
     Dosage: DRUG: OXICODONE
     Route: 048
     Dates: start: 20081020, end: 20081212
  6. LYRICA [Concomitant]
     Route: 048
     Dates: start: 20081024, end: 20081212
  7. NAPROXEN [Concomitant]
     Route: 048
     Dates: start: 20081020, end: 20081210
  8. OXYCODONE HCL [Concomitant]
     Dosage: FREQUENCY: Q2-3 PRN DRUG: OXYCODONE IR
     Route: 048
     Dates: start: 20081120, end: 20081210
  9. HEPARIN [Concomitant]
     Dosage: DOSE: 500UNITS ROUTE: IV-INSTILLED BUT NOT FLUSHED
     Dates: start: 20081126

REACTIONS (1)
  - HAEMORRHAGE [None]
